FAERS Safety Report 6215491-3 (Version None)
Quarter: 2009Q2

REPORT INFORMATION
  Report Type: 
  Country: None (occurrence: None)
  Receive Date: 20090603
  Receipt Date: 20090525
  Transmission Date: 20091009
  Serious: Yes (Hospitalization)
  Sender: FDA-Public Use
  Company Number: GXKR2009HU06152

PATIENT
  Age: 39 Year
  Sex: Male

DRUGS (4)
  1. ACETYLSALICYLIC ACID SRT [Suspect]
     Indication: ANTIPLATELET THERAPY
     Dosage: 100 MG,; 300 MG/DAY,
  2. CLOPIDOGREL [Suspect]
     Indication: ANTIPLATELET THERAPY
     Dosage: 75 MG,; 150 MG/DAY,
  3. DICLOFENAC (NGX) (DICLOFENAC) [Suspect]
     Indication: INTERVERTEBRAL DISC PROTRUSION
     Dosage: 75 MG, BID,
  4. MELOXICAM [Suspect]
     Indication: INTERVERTEBRAL DISC PROTRUSION
     Dosage: 15 MG, BID,

REACTIONS (2)
  - ACUTE MYOCARDIAL INFARCTION [None]
  - THROMBOSIS IN DEVICE [None]
